FAERS Safety Report 6772443-2 (Version None)
Quarter: 2010Q2

REPORT INFORMATION
  Report Type: 
  Country: None (occurrence: None)
  Receive Date: 20100616
  Receipt Date: 20100610
  Transmission Date: 20101027
  Serious: Yes (Hospitalization)
  Sender: FDA-Public Use
  Company Number: GB-MERCK-0910GBR00060

PATIENT
  Age: 42 Year
  Sex: Female

DRUGS (11)
  1. ISENTRESS [Suspect]
     Indication: HIV INFECTION
     Route: 065
     Dates: start: 20081023
  2. DARUNAVIR [Suspect]
     Route: 048
     Dates: start: 20081023
  3. ETRAVIRINE [Suspect]
     Route: 048
     Dates: start: 20081023
  4. RITONAVIR [Suspect]
     Route: 048
     Dates: start: 20060905, end: 20081022
  5. RITONAVIR [Suspect]
     Route: 048
     Dates: start: 20081023
  6. EMTRICITABINE AND TENOFOVIR DISOPROXIL FUMARATE [Suspect]
     Route: 065
     Dates: start: 20060905, end: 20081023
  7. TIPRANAVIR [Suspect]
     Route: 048
     Dates: start: 20060905, end: 20081023
  8. INSULIN [Concomitant]
     Route: 065
  9. ZIDOVUDINE [Concomitant]
     Route: 042
  10. NITROUS OXIDE AND OXYGEN [Concomitant]
     Route: 055
  11. PREDNISOLONE [Concomitant]
     Route: 065

REACTIONS (2)
  - DRUG EXPOSURE DURING PREGNANCY [None]
  - PREMATURE LABOUR [None]
